FAERS Safety Report 8072891-7 (Version None)
Quarter: 2012Q1

REPORT INFORMATION
  Report Type: 
  Country: None (occurrence: None)
  Receive Date: 20120120
  Receipt Date: 20120109
  Transmission Date: 20120608
  Serious: Yes (Death)
  Sender: FDA-Public Use
  Company Number: 2012MA000709

PATIENT
  Age: 44 Year
  Sex: Male

DRUGS (7)
  1. LEVETIRACETAM [Concomitant]
  2. CAFFEINE [Suspect]
  3. CITALOPRAM HYDROBROMIDE [Suspect]
  4. FENTANYL CITRATE [Concomitant]
  5. AMITRIPTYLINE HCL [Concomitant]
  6. PHEOBARBITAL [Concomitant]
  7. LAMOTRIGINE [Concomitant]

REACTIONS (3)
  - ARRHYTHMIA [None]
  - TOXICITY TO VARIOUS AGENTS [None]
  - UNRESPONSIVE TO STIMULI [None]
